FAERS Safety Report 8963251 (Version 3)
Quarter: 2013Q1

REPORT INFORMATION
  Report Type: Report from Study
  Country: US (occurrence: US)
  Receive Date: 20121214
  Receipt Date: 20130227
  Transmission Date: 20140127
  Serious: Yes (Hospitalization, Other)
  Sender: FDA-Public Use
  Company Number: US-PFIZER INC-2012308377

PATIENT
  Age: 22 Year
  Sex: Male

DRUGS (4)
  1. CYTARABINE [Suspect]
     Indication: ACUTE MYELOID LEUKAEMIA
     Dosage: 200 MG/M2, CYCLIC
     Route: 042
     Dates: start: 20120713
  2. SPRYCEL [Suspect]
     Indication: ACUTE MYELOID LEUKAEMIA
     Dosage: 100 MG, CYCLIC
     Route: 048
     Dates: start: 20120713
  3. SPRYCEL [Suspect]
     Dosage: 100 MG, CYCLIC
     Route: 048
  4. DAUNORUBICIN [Suspect]
     Indication: ACUTE MYELOID LEUKAEMIA
     Dosage: 60 MG/M2/DAY INTRAVENOUS PUSH (IVP) ON DAYS 1-3
     Route: 042
     Dates: start: 20120713

REACTIONS (5)
  - Febrile neutropenia [Unknown]
  - Pancytopenia [Unknown]
  - Pain [Unknown]
  - Productive cough [Unknown]
  - Pneumonia fungal [Not Recovered/Not Resolved]
